FAERS Safety Report 16584183 (Version 1)
Quarter: 2019Q3

REPORT INFORMATION
  Report Type: Spontaneous
  Country: US (occurrence: US)
  Receive Date: 20190717
  Receipt Date: 20190717
  Transmission Date: 20191004
  Serious: No
  Sender: FDA-Public Use
  Company Number: US-ASTRAZENECA-2019SE90618

PATIENT
  Age: 22812 Day
  Sex: Female
  Weight: 72.6 kg

DRUGS (3)
  1. METFORMIN [Concomitant]
     Active Substance: METFORMIN HYDROCHLORIDE
     Indication: TYPE 2 DIABETES MELLITUS
     Route: 048
     Dates: start: 2005
  2. LANTUS [Concomitant]
     Active Substance: INSULIN GLARGINE
     Dosage: 48 UNITS TWICE DAILY
     Route: 058
     Dates: start: 20190617
  3. BYDUREON BCISE [Suspect]
     Active Substance: EXENATIDE
     Indication: GLYCOSYLATED HAEMOGLOBIN INCREASED
     Dosage: ONCE A WEEK
     Route: 065
     Dates: start: 20190617

REACTIONS (2)
  - Injection site pain [Unknown]
  - Wrong technique in device usage process [Unknown]

NARRATIVE: CASE EVENT DATE: 20190617
